FAERS Safety Report 7123845-6 (Version None)
Quarter: 2010Q4

REPORT INFORMATION
  Report Type: 
  Country: None (occurrence: None)
  Receive Date: 20101125
  Receipt Date: 20101122
  Transmission Date: 20110411
  Serious: Yes (Death)
  Sender: FDA-Public Use
  Company Number: PHEH2007US16393

PATIENT
  Sex: Female
  Weight: 46.712 kg

DRUGS (7)
  1. EXJADE [Suspect]
     Indication: IRON OVERLOAD
     Dosage: 500 MG, QD
     Route: 048
     Dates: start: 20060803
  2. DESFERAL [Suspect]
     Dosage: UNK
  3. FENTANYL [Concomitant]
     Indication: PAIN
     Dosage: 200 MCG/KG
     Route: 062
     Dates: start: 20020101
  4. METHADONE [Concomitant]
     Indication: PAIN
     Dosage: 20 MG, DAILY
     Route: 048
     Dates: start: 20020101
  5. FOLIC ACID [Concomitant]
     Dosage: 1 MG DAILY
     Route: 048
     Dates: start: 20020101
  6. COLACE [Concomitant]
     Dosage: 100 MG, BID
     Route: 048
     Dates: start: 20040101
  7. ELAVIL [Concomitant]
     Dosage: 25 MG
     Route: 048
     Dates: start: 20040101

REACTIONS (2)
  - DEATH [None]
  - TREATMENT NONCOMPLIANCE [None]
